FAERS Safety Report 6987208-6 (Version None)
Quarter: 2010Q3

REPORT INFORMATION
  Report Type: 
  Country: None (occurrence: None)
  Receive Date: 20100916
  Receipt Date: 20100910
  Transmission Date: 20110219
  Serious: Yes (Other)
  Sender: FDA-Public Use
  Company Number: DE-GENZYME-CERZ-1001505

PATIENT

DRUGS (1)
  1. CEREZYME [Suspect]
     Indication: DRUG EXPOSURE DURING PREGNANCY
     Dosage: 2000 U, Q2W
     Dates: start: 20100101, end: 20100909

REACTIONS (1)
  - BRADYCARDIA FOETAL [None]
